FAERS Safety Report 16926336 (Version 4)
Quarter: 2020Q1

REPORT INFORMATION
  Report Type: Spontaneous
  Country: JP (occurrence: JP)
  Receive Date: 20191016
  Receipt Date: 20200220
  Transmission Date: 20200409
  Serious: Yes (Death, Other)
  Sender: FDA-Public Use
  Company Number: JP-JAZZ-2019-JP-014299

PATIENT
  Age: 14 Year
  Sex: Female
  Weight: 34.5 kg

DRUGS (1)
  1. DEFITELIO [Suspect]
     Active Substance: DEFIBROTIDE SODIUM
     Indication: VENOOCCLUSIVE LIVER DISEASE
     Dosage: 25 MG/KG/DAY
     Route: 042
     Dates: start: 20190926, end: 20191011

REACTIONS (4)
  - Off label use [Unknown]
  - Multiple organ dysfunction syndrome [Fatal]
  - Acute lymphocytic leukaemia [Fatal]
  - Haematochezia [Recovering/Resolving]

NARRATIVE: CASE EVENT DATE: 20190926
